FAERS Safety Report 15155266 (Version 1)
Quarter: 2018Q3

REPORT INFORMATION
  Report Type: Spontaneous
  Country: US (occurrence: US)
  Receive Date: 20180620
  Receipt Date: 20180620
  Transmission Date: 20181010
  Serious: No
  Sender: FDA-Public Use
  Company Number: None

PATIENT
  Age: 72 Year
  Sex: Female
  Weight: 72 kg

DRUGS (1)
  1. FLUTICASONE. [Suspect]
     Active Substance: FLUTICASONE
     Indication: RHINITIS
     Dosage: ?          OTHER STRENGTH:MCG;QUANTITY:2 SPRAY(S);OTHER FREQUENCY:EACH NOSTRIL, DAIL;?
     Dates: start: 20171227, end: 20180618

REACTIONS (3)
  - Product use issue [None]
  - Epistaxis [None]
  - Nasal dryness [None]

NARRATIVE: CASE EVENT DATE: 20180601
